FAERS Safety Report 18801002 (Version 1)
Quarter: 2021Q1

REPORT INFORMATION
  Report Type: Spontaneous
  Country: AU (occurrence: AU)
  Receive Date: 20210128
  Receipt Date: 20210128
  Transmission Date: 20210419
  Serious: Yes (Hospitalization, Other)
  Sender: FDA-Public Use
  Company Number: AU-GRANULES-AU-2021GRALIT00050

PATIENT
  Age: 36 Year
  Sex: Male

DRUGS (6)
  1. METHYLPREDNISOLONE. [Interacting]
     Active Substance: METHYLPREDNISOLONE
     Indication: SJS-TEN OVERLAP
     Route: 042
  2. IBUPROFEN. [Suspect]
     Active Substance: IBUPROFEN
     Indication: PYREXIA
     Route: 065
  3. IMMUNOGLOBULIN I.V [Interacting]
     Active Substance: HUMAN IMMUNOGLOBULIN G
     Indication: SJS-TEN OVERLAP
     Route: 042
  4. PARACETAMOL [Suspect]
     Active Substance: ACETAMINOPHEN
     Indication: PYREXIA
     Route: 065
  5. CYCLOSPORINE. [Interacting]
     Active Substance: CYCLOSPORINE
     Indication: SJS-TEN OVERLAP
     Route: 065
  6. CODEINE [Suspect]
     Active Substance: CODEINE
     Indication: PYREXIA
     Route: 065

REACTIONS (3)
  - Melanocytic naevus [Recovered/Resolved]
  - SJS-TEN overlap [Recovered/Resolved]
  - Self-medication [Unknown]
